FAERS Safety Report 7720049-0 (Version None)
Quarter: 2011Q3

REPORT INFORMATION
  Report Type: 
  Country: None (occurrence: None)
  Receive Date: 20110831
  Receipt Date: 20110822
  Transmission Date: 20111222
  Serious: No
  Sender: FDA-Public Use
  Company Number: US-BIOGENIDEC-2011BI032481

PATIENT
  Age: 52 Year
  Sex: Female

DRUGS (1)
  1. AVONEX [Suspect]
     Indication: MULTIPLE SCLEROSIS
     Route: 030
     Dates: start: 19970627

REACTIONS (7)
  - MULTIPLE SCLEROSIS RELAPSE [None]
  - BURNING SENSATION [None]
  - MENTAL STATUS CHANGES [None]
  - ASTHENIA [None]
  - MUSCLE SPASTICITY [None]
  - COGNITIVE DISORDER [None]
  - DEPRESSED MOOD [None]
